FAERS Safety Report 16887963 (Version 1)
Quarter: 2019Q4

REPORT INFORMATION
  Report Type: Spontaneous
  Country: CA (occurrence: CA)
  Receive Date: 20191006
  Receipt Date: 20191006
  Transmission Date: 20200122
  Serious: Yes (Other)
  Sender: FDA-Public Use
  Company Number: CA-SAMSUNG BIOEPIS-SB-2019-29006

PATIENT
  Age: 63 Year
  Sex: Female

DRUGS (3)
  1. METHOTREXATE. [Concomitant]
     Active Substance: METHOTREXATE
     Dosage: UNKNOWN
     Route: 048
  2. METHOTREXATE. [Concomitant]
     Active Substance: METHOTREXATE
     Indication: PRODUCT USED FOR UNKNOWN INDICATION
     Dosage: UNKNOWN
     Route: 065
  3. INFLIXIMAB [Suspect]
     Active Substance: INFLIXIMAB
     Indication: RHEUMATOID ARTHRITIS
     Route: 042

REACTIONS (9)
  - Arthralgia [Recovered/Resolved]
  - Nasal dryness [Recovered/Resolved]
  - Ankle fracture [Recovered/Resolved]
  - Sleep disorder [Recovered/Resolved]
  - Drug ineffective [Recovered/Resolved]
  - Device loosening [Recovered/Resolved]
  - Nasal congestion [Recovered/Resolved]
  - Off label use [Recovered/Resolved]
  - Postoperative wound infection [Recovered/Resolved]
